FAERS Safety Report 9464577 (Version 1)
Quarter: 2013Q3

REPORT INFORMATION
  Report Type: Spontaneous
  Country: TN (occurrence: TN)
  Receive Date: 20130819
  Receipt Date: 20130819
  Transmission Date: 20140515
  Serious: Yes (Other)
  Sender: FDA-Public Use
  Company Number: TN-B.I. PHARMACEUTICALS,INC./RIDGEFIELD-2013-BI-25324BI

PATIENT
  Sex: 0

DRUGS (1)
  1. MOBIC [Suspect]

REACTIONS (1)
  - Adverse drug reaction [Unknown]
